FAERS Safety Report 21937821 (Version 1)
Quarter: 2023Q1

REPORT INFORMATION
  Report Type: Spontaneous
  Country: NZ (occurrence: NZ)
  Receive Date: 20230201
  Receipt Date: 20230201
  Transmission Date: 20230417
  Serious: Yes (Hospitalization, Other)
  Sender: FDA-Public Use
  Company Number: NZ-002147023-NVSC2023NZ018271

PATIENT
  Age: 11 Month
  Sex: Female

DRUGS (4)
  1. TACROLIMUS [Suspect]
     Active Substance: TACROLIMUS
     Indication: Liver transplant
     Dosage: (MAINTENANCE), (INITIAL TROUGH TARGET 10-15 MCG/L)
     Route: 065
  2. TACROLIMUS [Suspect]
     Active Substance: TACROLIMUS
     Indication: Immunosuppressant drug therapy
     Dosage: UNK (TROUGH TARGETS OF 3-5 MCG/L)
     Route: 065
  3. PREDNISONE [Concomitant]
     Active Substance: PREDNISONE
     Indication: Liver transplant
     Dosage: UNK (TAPERED OVER 1-YEAR FOLLOWING TRANSPLANT)
     Route: 065
  4. PREDNISONE [Concomitant]
     Active Substance: PREDNISONE
     Indication: Immunosuppressant drug therapy

REACTIONS (4)
  - Laryngitis [Recovered/Resolved]
  - Eosinophilic oesophagitis [Recovered/Resolved]
  - Transplant dysfunction [Unknown]
  - Liver transplant rejection [Unknown]
